FAERS Safety Report 10592564 (Version 1)
Quarter: 2014Q4

REPORT INFORMATION
  Report Type: Spontaneous
  Country: US (occurrence: US)
  Receive Date: 20141119
  Receipt Date: 20141119
  Transmission Date: 20150529
  Serious: No
  Sender: FDA-Public Use
  Company Number: US-PFIZER INC-2014314315

PATIENT
  Age: 57 Year
  Sex: Male
  Weight: 91 kg

DRUGS (4)
  1. ALAVERT ALLERGY [Suspect]
     Active Substance: LORATADINE
     Indication: EYE PRURITUS
  2. ALAVERT ALLERGY [Suspect]
     Active Substance: LORATADINE
     Indication: SNEEZING
     Dosage: UNK, ONCE A DAY
     Dates: start: 20141111
  3. ALAVERT ALLERGY [Suspect]
     Active Substance: LORATADINE
     Indication: RHINORRHOEA
  4. ALAVERT ALLERGY [Suspect]
     Active Substance: LORATADINE
     Indication: LACRIMATION INCREASED

REACTIONS (1)
  - Drug ineffective [Not Recovered/Not Resolved]

NARRATIVE: CASE EVENT DATE: 20141111
